FAERS Safety Report 7568837-8 (Version None)
Quarter: 2011Q2

REPORT INFORMATION
  Report Type: 
  Country: None (occurrence: None)
  Receive Date: 20110623
  Receipt Date: 20110610
  Transmission Date: 20111010
  Serious: Yes (Other)
  Sender: FDA-Public Use
  Company Number: US-AMGEN-USASP2011030097

PATIENT
  Age: 65 Year
  Sex: Female

DRUGS (1)
  1. ENBREL [Suspect]
     Indication: RHEUMATOID ARTHRITIS
     Dosage: 25 MG, QWK
     Dates: start: 20040101

REACTIONS (8)
  - THROMBOSIS [None]
  - PARAESTHESIA [None]
  - NEUROPATHY PERIPHERAL [None]
  - EYE DEGENERATIVE DISORDER [None]
  - COORDINATION ABNORMAL [None]
  - DYSSTASIA [None]
  - THYROID NEOPLASM [None]
  - DIZZINESS [None]
